FAERS Safety Report 8205885-9 (Version None)
Quarter: 2012Q1

REPORT INFORMATION
  Report Type: 
  Country: None (occurrence: None)
  Receive Date: 20120313
  Receipt Date: 20120305
  Transmission Date: 20120608
  Serious: Yes (Other)
  Sender: FDA-Public Use
  Company Number: PHHY2012AU019801

PATIENT
  Age: 25 Year
  Sex: Male

DRUGS (3)
  1. HYPERICUM [Interacting]
     Indication: EMOTIONAL DISTRESS
     Dosage: UNK UKN, UNK
  2. ESCITALOPRAM [Interacting]
     Indication: EMOTIONAL DISTRESS
     Dosage: UNK UKN, UNK
  3. SERTRALINE HYDROCHLORIDE [Suspect]
     Indication: EMOTIONAL DISTRESS
     Dosage: UNK UKN, UNK

REACTIONS (14)
  - AKATHISIA [None]
  - SEROTONIN SYNDROME [None]
  - EJACULATION FAILURE [None]
  - AGITATION [None]
  - HOMICIDAL IDEATION [None]
  - DRUG INTERACTION [None]
  - DEPRESSION [None]
  - PERSONALITY CHANGE [None]
  - MANIA [None]
  - IMPULSIVE BEHAVIOUR [None]
  - AGGRESSION [None]
  - PARANOIA [None]
  - SUICIDE ATTEMPT [None]
  - FEELING OF DESPAIR [None]
